FAERS Safety Report 25819525 (Version 1)
Quarter: 2025Q3

REPORT INFORMATION
  Report Type: Spontaneous
  Country: US (occurrence: US)
  Receive Date: 20250918
  Receipt Date: 20250918
  Transmission Date: 20251021
  Serious: No
  Sender: SANOFI AVENTIS
  Company Number: US-SA-2025SA278665

PATIENT
  Sex: Female

DRUGS (12)
  1. DUPIXENT [Suspect]
     Active Substance: DUPILUMAB
     Indication: Dermatitis atopic
     Dosage: 300 MG, QOW
     Route: 058
     Dates: start: 20250821
  2. CETIRIZINE [Concomitant]
     Active Substance: CETIRIZINE HYDROCHLORIDE
  3. DESLORATADINE [Concomitant]
     Active Substance: DESLORATADINE
  4. DIPHENHYDRAMINE [Concomitant]
     Active Substance: DIPHENHYDRAMINE
  5. EPIPEN [Concomitant]
     Active Substance: EPINEPHRINE
  6. FLUTICASONE [Concomitant]
     Active Substance: FLUTICASONE
  7. UNSPECIFIED INGREDIENT [Concomitant]
     Active Substance: UNSPECIFIED INGREDIENT
  8. MUPIROCIN [Concomitant]
     Active Substance: MUPIROCIN
  9. PIMECROLIMUS [Concomitant]
     Active Substance: PIMECROLIMUS
  10. Triamcinolon [Concomitant]
  11. VENTOLIN [Concomitant]
     Active Substance: ALBUTEROL SULFATE
  12. ALBUTEROL [Concomitant]
     Active Substance: ALBUTEROL

REACTIONS (2)
  - Injection site pain [Unknown]
  - Product preparation error [Unknown]

NARRATIVE: CASE EVENT DATE: 20250101
